FAERS Safety Report 12719612 (Version 2)
Quarter: 2016Q3

REPORT INFORMATION
  Report Type: Report from Study
  Country: CR (occurrence: CR)
  Receive Date: 20160907
  Receipt Date: 20160920
  Transmission Date: 20161109
  Serious: No
  Sender: FDA-Public Use
  Company Number: PHHY2015CR106971

PATIENT
  Age: 57 Year
  Sex: Male
  Weight: 86 kg

DRUGS (3)
  1. TASIGNA [Suspect]
     Active Substance: NILOTINIB
     Indication: CHRONIC MYELOID LEUKAEMIA
     Dosage: 800 MG, QD (10 AM AND AT 3 PM)
     Route: 065
  2. TASIGNA [Suspect]
     Active Substance: NILOTINIB
     Dosage: 800 MG, QD (2 AT 10 AM AND 2 AT 10 PM)
     Route: 065
  3. TASIGNA [Suspect]
     Active Substance: NILOTINIB
     Dosage: 400 MG, BID
     Route: 048

REACTIONS (13)
  - Abdominal discomfort [Recovering/Resolving]
  - Abdominal pain upper [Not Recovered/Not Resolved]
  - Abdominal pain [Unknown]
  - Blister [Recovered/Resolved]
  - Eye irritation [Unknown]
  - Rash [Unknown]
  - Nasopharyngitis [Unknown]
  - Hyperchlorhydria [Unknown]
  - Constipation [Not Recovered/Not Resolved]
  - Incorrect drug administration duration [Unknown]
  - Gastritis [Recovering/Resolving]
  - Visual impairment [Recovering/Resolving]
  - Fatigue [Not Recovered/Not Resolved]
